FAERS Safety Report 5637193-4 (Version None)
Quarter: 2008Q1

REPORT INFORMATION
  Report Type: 
  Country: None (occurrence: None)
  Receive Date: 20080225
  Receipt Date: 20080212
  Transmission Date: 20080703
  Serious: Yes (Hospitalization)
  Sender: FDA-Public Use
  Company Number: US-AMGEN-US259205

PATIENT
  Sex: Female
  Weight: 106.2 kg

DRUGS (9)
  1. PANITUMUMAB [Suspect]
     Indication: COLORECTAL CANCER
     Route: 042
     Dates: start: 20070814
  2. PANITUMUMAB [Suspect]
     Route: 042
     Dates: start: 20071226, end: 20071226
  3. PANITUMUMAB [Suspect]
     Dates: start: 20080122
  4. IRINOTECAN [Suspect]
     Route: 065
     Dates: start: 20071226
  5. VITAMIN CAP [Concomitant]
     Route: 065
  6. PRILOSEC [Concomitant]
     Route: 065
  7. FOLIC ACID [Concomitant]
     Route: 065
  8. MORPHINE [Concomitant]
     Route: 054
  9. VITAMIN E [Concomitant]
     Route: 065

REACTIONS (4)
  - FEBRILE NEUTROPENIA [None]
  - FUNGAL INFECTION [None]
  - GASTROENTERITIS [None]
  - THROMBOCYTOPENIA [None]
